FAERS Safety Report 4990366-6 (Version None)
Quarter: 2006Q2

REPORT INFORMATION
  Report Type: 
  Country: None (occurrence: None)
  Receive Date: 20060502
  Receipt Date: 20060502
  Transmission Date: 20061013
  Serious: Yes (Death)
  Sender: FDA-Public Use
  Company Number: None

PATIENT
  Age: 79 Year
  Sex: Male
  Weight: 72.1219 kg

DRUGS (13)
  1. GEMZAR [Suspect]
     Indication: PANCREATIC CARCINOMA
     Dosage: 1000MG/M2  DAY 1 + 15 IV DRIP
     Route: 041
     Dates: start: 20051025, end: 20060411
  2. CISPLATIN [Suspect]
     Indication: PANCREATIC CARCINOMA
     Dosage: 20MG/M2  DAY 1 + 15 IV DRIP
     Route: 041
     Dates: start: 20051025, end: 20060411
  3. BEVACIZUMAB  25MG/ML  GENENTECH [Suspect]
     Indication: PANCREATIC CARCINOMA
     Dosage: 10MG/KG  DAY 1 + 15 IV DRIP
     Route: 041
     Dates: start: 20051025, end: 20060411
  4. FUROSEMIDE [Concomitant]
  5. PROCAINAMIDE [Concomitant]
  6. MEGACE [Concomitant]
  7. NITROPASTE [Concomitant]
  8. PROTONIX [Concomitant]
  9. PANCREASE [Concomitant]
  10. LORAZEPAM [Concomitant]
  11. PROCHLORPERZINE [Concomitant]
  12. DEXAMETHASONE [Concomitant]
  13. ODANSETRON [Concomitant]

REACTIONS (7)
  - ANOREXIA [None]
  - ASTHENIA [None]
  - DYSPNOEA EXERTIONAL [None]
  - FALL [None]
  - FATIGUE [None]
  - LOSS OF CONSCIOUSNESS [None]
  - TACHYCARDIA [None]
